FAERS Safety Report 17033052 (Version 1)
Quarter: 2019Q4

REPORT INFORMATION
  Report Type: Report from Study
  Country: DE (occurrence: DE)
  Receive Date: 20191114
  Receipt Date: 20191114
  Transmission Date: 20200122
  Serious: Yes (Hospitalization)
  Sender: FDA-Public Use
  Company Number: DE-KARYOPHARM THERAPEUTICS, INC.-2018KPT000536

PATIENT
  Age: 75 Year
  Sex: Male
  Weight: 94 kg

DRUGS (37)
  1. SELINEXOR [Suspect]
     Active Substance: SELINEXOR
     Dosage: 80 WEEKLY X 5 WEEKS/ CYCLE
     Route: 048
     Dates: start: 20180924, end: 20181008
  2. DEXAMETHASONE. [Suspect]
     Active Substance: DEXAMETHASONE
     Indication: PLASMA CELL MYELOMA
     Dosage: 20 MG, 2X/WEEK X 5 WEEKS/CYCLE
     Route: 048
     Dates: start: 20180730, end: 20180918
  3. TAMSULOSIN [Concomitant]
     Active Substance: TAMSULOSIN
     Indication: PRODUCT USED FOR UNKNOWN INDICATION
     Dosage: 0.4 MG, QD
     Route: 048
     Dates: start: 2013
  4. TORASEMID AAA-PHARMA [Concomitant]
     Active Substance: TORSEMIDE
     Indication: HYPERTENSION
     Dosage: 10 MG, QD
     Route: 048
     Dates: start: 2013
  5. EZETROL [Concomitant]
     Active Substance: EZETIMIBE
     Indication: PRODUCT USED FOR UNKNOWN INDICATION
     Dosage: 10 MG, QD
     Route: 048
     Dates: start: 2013
  6. TILIDIN AL COMP [Concomitant]
     Active Substance: NALOXONE HYDROCHLORIDE\TILIDINE HYDROCHLORIDE
     Indication: PRODUCT USED FOR UNKNOWN INDICATION
     Dosage: 216 MG, PRN
     Route: 048
     Dates: start: 2013
  7. DUOTRAV COMBINATION [Concomitant]
     Active Substance: TIMOLOL MALEATE\TRAVOPROST
     Indication: PRODUCT USED FOR UNKNOWN INDICATION
     Dosage: 1 GTT, QD
     Route: 047
     Dates: start: 2013
  8. GRANISETRON ACTAVIS [Concomitant]
     Indication: PROPHYLAXIS
     Dosage: 3 MG, ON DAY OF THERAPY WITH BORTEZOMIB
     Route: 042
     Dates: start: 20180730, end: 20181002
  9. MEGESTROL ACETATE. [Concomitant]
     Active Substance: MEGESTROL ACETATE
     Indication: ADVERSE EVENT
     Dosage: 160 MG, PRN
     Route: 048
     Dates: start: 20180730, end: 20180917
  10. FRESUBIN ENERGY FIBRE [Concomitant]
     Indication: ADVERSE EVENT
     Dosage: 200 ML, PRN
     Route: 048
     Dates: start: 20180903, end: 20181002
  11. GRANISETRON [Concomitant]
     Active Substance: GRANISETRON
     Indication: ADVERSE EVENT
     Dosage: 2 MG, QD
     Route: 048
     Dates: start: 20180919, end: 20181002
  12. COAPROVEL [Concomitant]
     Active Substance: HYDROCHLOROTHIAZIDE\IRBESARTAN
     Indication: PRODUCT USED FOR UNKNOWN INDICATION
     Dosage: 325 MG, QD
     Route: 048
     Dates: start: 2013, end: 20180813
  13. LERCANIDIPIN ACTAVIS [Concomitant]
     Active Substance: LERCANIDIPINE
     Indication: PRODUCT USED FOR UNKNOWN INDICATION
     Dosage: 20 MG, BID
     Route: 048
     Dates: start: 2013, end: 20180910
  14. ATORVASTATIN +PHARMA [Concomitant]
     Indication: PRODUCT USED FOR UNKNOWN INDICATION
     Dosage: 60 MG, QD
     Route: 048
     Dates: start: 2013
  15. LEVEMIR [Concomitant]
     Active Substance: INSULIN DETEMIR
     Indication: TYPE 2 DIABETES MELLITUS
     Dosage: 15 IU, QD
     Route: 058
     Dates: start: 2013
  16. OMEPRAZOLE ABBOTT [Concomitant]
     Indication: PRODUCT USED FOR UNKNOWN INDICATION
     Dosage: 40 MG, QD
     Route: 048
     Dates: start: 1970
  17. NOVALGIN [Concomitant]
     Indication: PRODUCT USED FOR UNKNOWN INDICATION
     Dosage: 40 GTT, PRN
     Route: 048
     Dates: start: 2013, end: 20181002
  18. ACICLOVIR ^ALPHARMA^ [Concomitant]
     Indication: PROPHYLAXIS
     Dosage: 400 MG, QD
     Route: 048
     Dates: start: 20180730
  19. BORTEZOMIB. [Suspect]
     Active Substance: BORTEZOMIB
     Indication: PLASMA CELL MYELOMA
     Dosage: 1.3 MG/M^2, WEEKLY X 4 WEEKS, 1 WEEK OFF CYCLE
     Route: 058
     Dates: start: 20180730, end: 20180917
  20. DEXAMETHASONE. [Suspect]
     Active Substance: DEXAMETHASONE
     Dosage: 12 MG, 2X/WEEK X 5 WEEKS/ CYCLE
     Route: 048
     Dates: start: 20180924, end: 20180925
  21. ZYLORIC [Concomitant]
     Active Substance: ALLOPURINOL
     Indication: PROPHYLAXIS
     Dosage: 150 MG, QD
     Route: 048
     Dates: start: 2013
  22. MAGNESIUM AKTIV [Concomitant]
     Indication: PROPHYLAXIS
     Dosage: 375 MG, BID
     Route: 048
     Dates: start: 2013
  23. NOVORAPID [Concomitant]
     Active Substance: INSULIN ASPART
     Indication: TYPE 2 DIABETES MELLITUS
     Dosage: 10 IU, PRN
     Route: 058
     Dates: start: 2013
  24. SELINEXOR [Suspect]
     Active Substance: SELINEXOR
     Indication: PLASMA CELL MYELOMA
     Dosage: 100 MG, WEEKLY X 5 WEEKS/ CYCLE
     Route: 048
     Dates: start: 20180730, end: 20180917
  25. COAPROVEL [Concomitant]
     Active Substance: HYDROCHLOROTHIAZIDE\IRBESARTAN
     Dosage: 162.5 150MG/12.5 MG, QD
     Route: 048
     Dates: start: 20180814, end: 20180910
  26. ALPHA-LIPON [Concomitant]
     Active Substance: .ALPHA.-LIPOIC ACID
     Indication: PRODUCT USED FOR UNKNOWN INDICATION
     Dosage: 600 MG, QD
     Route: 048
     Dates: start: 2013
  27. MEGESTROL ACETATE. [Concomitant]
     Active Substance: MEGESTROL ACETATE
     Dosage: 160 MG, TID
     Route: 048
     Dates: start: 20180919, end: 20181002
  28. OLANZAPIN 1A PHARMA [Concomitant]
     Active Substance: OLANZAPINE
     Dosage: 2.5 MG, QD
     Route: 048
     Dates: start: 20180919, end: 20181002
  29. DEXAMETHASONE. [Suspect]
     Active Substance: DEXAMETHASONE
     Dosage: 10 MG, 2X/WEEK X 5 WEEKS/CYCLE
     Route: 048
     Dates: start: 20181001, end: 20181008
  30. DEXAMETHASONE. [Suspect]
     Active Substance: DEXAMETHASONE
     Dosage: 10 MG, 2X/WEEK X 5 WEEKS/CYCLE
     Route: 048
     Dates: start: 20181010
  31. CARVEDILOL. [Concomitant]
     Active Substance: CARVEDILOL
     Indication: CORONARY ARTERY DISEASE
     Dosage: 25 MG, BID
     Route: 048
     Dates: start: 2013
  32. COTRIM FORTE EU RHO [Concomitant]
     Active Substance: SULFAMETHOXAZOLE\TRIMETHOPRIM
     Indication: PROPHYLAXIS
     Dosage: 960 MG, 3X/WEEK
     Route: 048
     Dates: start: 20180730
  33. SELINEXOR [Suspect]
     Active Substance: SELINEXOR
     Dosage: 80 WEEKLY X 5 WEEKS/ CYCLE
     Route: 048
     Dates: start: 20181010
  34. BORTEZOMIB. [Suspect]
     Active Substance: BORTEZOMIB
     Dosage: 1.0 MG/M2 WEEKLY X 4 WEEKS, 1 WEEK OFF CYCLE
     Dates: start: 20180924, end: 20181008
  35. BORTEZOMIB. [Suspect]
     Active Substance: BORTEZOMIB
     Dosage: 1.0 MG/M2 WEEKLY X 4 WEEKS, 1 WEEK OFF CYCLE
     Dates: start: 20181010
  36. ACETYLSALICYLIC ACID BLUEFISH [Concomitant]
     Indication: CORONARY ARTERY DISEASE
     Dosage: 100 MG, QD
     Route: 048
     Dates: start: 2013
  37. OLANZAPIN 1A PHARMA [Concomitant]
     Active Substance: OLANZAPINE
     Indication: ADVERSE EVENT
     Dosage: 2.5 MG, PRN
     Route: 048
     Dates: start: 20180730, end: 20180917

REACTIONS (3)
  - Blood glucose abnormal [Recovered/Resolved]
  - Blood pressure fluctuation [Recovered/Resolved]
  - General physical health deterioration [Recovered/Resolved]

NARRATIVE: CASE EVENT DATE: 20181002
